FAERS Safety Report 22644495 (Version 1)
Quarter: 2023Q2

REPORT INFORMATION
  Report Type: Spontaneous
  Country: GB (occurrence: GB)
  Receive Date: 20230627
  Receipt Date: 20230627
  Transmission Date: 20230721
  Serious: Yes (Other)
  Sender: FDA-Public Use
  Company Number: GB-MHRA-MED-202306182115211270-MKFZB

PATIENT
  Age: 43 Year
  Sex: Male

DRUGS (4)
  1. LANSOPRAZOLE [Suspect]
     Active Substance: LANSOPRAZOLE
     Indication: Adverse drug reaction
     Dosage: 30MG; ;
     Dates: end: 20230616
  2. ANASTROZOLE [Concomitant]
     Active Substance: ANASTROZOLE
     Indication: Adverse drug reaction
  3. GONADOTROPHIN, CHORIONIC [Concomitant]
     Active Substance: GONADOTROPHIN, CHORIONIC
     Indication: Adverse drug reaction
  4. TESTOSTERONE CYPIONATE [Concomitant]
     Active Substance: TESTOSTERONE CYPIONATE
     Indication: Adverse drug reaction

REACTIONS (1)
  - Erectile dysfunction [Recovering/Resolving]
